FAERS Safety Report 11626351 (Version 1)
Quarter: 2015Q4

REPORT INFORMATION
  Report Type: Spontaneous
  Country: US (occurrence: US)
  Receive Date: 20151013
  Receipt Date: 20151013
  Transmission Date: 20160304
  Serious: No
  Sender: FDA-Public Use
  Company Number: US-ROCHE-1294970

PATIENT
  Age: 80 Year
  Sex: Female
  Weight: 66.38 kg

DRUGS (28)
  1. CLARITIN-D 12 HOUR [Concomitant]
     Active Substance: LORATADINE\PSEUDOEPHEDRINE SULFATE
     Dosage: 5MG-120MG TABLET
     Route: 048
  2. FOLIC ACID. [Concomitant]
     Active Substance: FOLIC ACID
     Route: 048
  3. GINKGO BILOBA [Concomitant]
     Active Substance: GINKGO
     Route: 048
  4. MAGNESIUM CITRATE. [Concomitant]
     Active Substance: MAGNESIUM CITRATE
     Dosage: 1/2 TO 1 TSP DAILY
     Route: 065
  5. GABAPENTIN. [Concomitant]
     Active Substance: GABAPENTIN
     Dosage: 300MG - 600MG
     Route: 048
  6. SPIRONOLACTONE. [Concomitant]
     Active Substance: SPIRONOLACTONE
     Dosage: BEDTIME
     Route: 065
  7. VITAMINS AND MINERALS [Concomitant]
     Dosage: NUMEROUS DAILY
     Route: 048
  8. ALPHA LIPOIC ACID [Concomitant]
     Active Substance: .ALPHA.-LIPOIC ACID
     Dosage: 2-3 DAILY
     Route: 048
  9. VITAMIN A [Concomitant]
     Active Substance: VITAMIN A
     Route: 065
  10. ZELBORAF [Suspect]
     Active Substance: VEMURAFENIB
     Indication: MALIGNANT MELANOMA
     Dosage: START ALMOST 2 YEARS AGO, 240/480
     Route: 048
  11. ZELBORAF [Suspect]
     Active Substance: VEMURAFENIB
     Dosage: TAB IN AM AND TAB IN PM (2ND TAB EVERY OTHER DAY), QUARTER OF THE FULL DOSE WHICH IS BELOW THE LOWES
     Route: 048
     Dates: start: 20120322
  12. METFORMIN [Concomitant]
     Active Substance: METFORMIN HYDROCHLORIDE
     Dosage: AM AND PM
     Route: 048
  13. ZELBORAF [Suspect]
     Active Substance: VEMURAFENIB
     Dosage: TAB IN AM AND TAB IN PM (2ND TAB EVERY OTHER DAY), QUARTER OF THE FULL DOSE WHICH IS BELOW THE LOWES
     Route: 048
     Dates: start: 20120322
  14. CEFDINIR. [Concomitant]
     Active Substance: CEFDINIR
     Route: 048
  15. CURCUMIN [Concomitant]
     Active Substance: CURCUMIN
     Dosage: 2 QAM
     Route: 048
  16. CYANOCOBALAMIN. [Concomitant]
     Active Substance: CYANOCOBALAMIN
     Dosage: 1000 MG/ML INJECTION
     Route: 065
  17. HEMPSEED [Concomitant]
     Route: 065
  18. LEVOTHYROXIN [Concomitant]
     Active Substance: LEVOTHYROXINE
     Route: 048
  19. ZELBORAF [Suspect]
     Active Substance: VEMURAFENIB
     Route: 048
     Dates: start: 20140317
  20. FISH OIL [Concomitant]
     Active Substance: FISH OIL
     Dosage: 1200 MG-144 MG - 216 MG
     Route: 048
  21. GREEN TEA EXTRACT [Concomitant]
     Dosage: GREEN TEA LEAF EXTRACT
     Route: 048
  22. BENADRYL [Concomitant]
     Active Substance: DIPHENHYDRAMINE HYDROCHLORIDE
     Dosage: AT BEDTIME
     Route: 065
  23. METOPROLOL TARTRATE. [Concomitant]
     Active Substance: METOPROLOL TARTRATE
     Route: 048
  24. THYROID [Concomitant]
     Active Substance: LEVOTHYROXINE\LIOTHYRONINE
     Dosage: THYROID (PORK)
     Route: 048
  25. JUICE PLUS+ VINEYARD BLEND [Concomitant]
     Dosage: BLEND BEFORE BREAKFAST
     Route: 065
  26. FLAXSEED [Concomitant]
     Active Substance: FLAX SEED
     Dosage: 1 TSP
     Route: 048
  27. VITAMIN C [Concomitant]
     Active Substance: ASCORBIC ACID
     Dosage: WITH MEALS?500 MG-50 MG-25 MG-40 MG
     Route: 065
  28. WARFARIN [Concomitant]
     Active Substance: WARFARIN
     Dosage: CURRENTLY ALTERNATING 6 AND  7 MG DAILY
     Route: 048

REACTIONS (8)
  - Underdose [Unknown]
  - Fatigue [Unknown]
  - Squamous cell carcinoma [Not Recovered/Not Resolved]
  - Squamous cell carcinoma of head and neck [Not Recovered/Not Resolved]
  - Vision blurred [Unknown]
  - Leukoplakia [Not Recovered/Not Resolved]
  - Skin lesion [Not Recovered/Not Resolved]
  - Gingival disorder [Not Recovered/Not Resolved]

NARRATIVE: CASE EVENT DATE: 20130913
